FAERS Safety Report 9555164 (Version 1)
Quarter: 2013Q3

REPORT INFORMATION
  Report Type: Spontaneous
  Country: US (occurrence: None)
  Receive Date: 20130815
  Receipt Date: 20130815
  Transmission Date: 20140515
  Serious: Yes (Hospitalization, Other)
  Sender: FDA-Public Use
  Company Number: ADR-2013-00981

PATIENT
  Age: 52 Year
  Sex: Female

DRUGS (4)
  1. BACLOFEN [Suspect]
  2. CLONIDINE [Concomitant]
  3. BUPIVACAINE [Concomitant]
  4. MORPHINE [Concomitant]

REACTIONS (5)
  - Hyperhidrosis [None]
  - Unresponsive to stimuli [None]
  - Mental status changes [None]
  - Incorrect route of drug administration [None]
  - Overdose [None]
